FAERS Safety Report 11563640 (Version 2)
Quarter: 2015Q4

REPORT INFORMATION
  Report Type: Spontaneous
  Country: US (occurrence: US)
  Receive Date: 20150928
  Receipt Date: 20151106
  Transmission Date: 20160304
  Serious: No
  Sender: FDA-Public Use
  Company Number: US-PFIZER INC-2015322437

PATIENT
  Age: 12 Year
  Sex: Female
  Weight: 58 kg

DRUGS (1)
  1. GENOTROPIN [Suspect]
     Active Substance: SOMATROPIN
     Indication: DWARFISM
     Dosage: 2.2 MG, DAILY
     Route: 058
     Dates: start: 20150310

REACTIONS (2)
  - Pain in extremity [Unknown]
  - Peripheral swelling [Unknown]
